FAERS Safety Report 8202818-6 (Version None)
Quarter: 2012Q1

REPORT INFORMATION
  Report Type: 
  Country: None (occurrence: None)
  Receive Date: 20120312
  Receipt Date: 20120312
  Transmission Date: 20120608
  Serious: Yes (Other)
  Sender: FDA-Public Use
  Company Number: None

PATIENT
  Age: 64 Year
  Sex: Female
  Weight: 63.956 kg

DRUGS (13)
  1. VITAMIN B COMPLEX CAP [Concomitant]
  2. VANIQA [Concomitant]
     Dosage: 2 APPLICATIONS
     Route: 061
     Dates: start: 20120111, end: 20120303
  3. VITAMIN K1 [Concomitant]
  4. VANIQA [Suspect]
     Indication: HAIR GROWTH ABNORMAL
     Dosage: 2 APPLICATIONS
     Route: 061
     Dates: start: 20120111, end: 20120303
  5. VANIQA [Suspect]
     Indication: HORMONE REPLACEMENT THERAPY
     Dosage: 2 APPLICATIONS
     Route: 061
     Dates: start: 20120111, end: 20120303
  6. XIFAXAN [Concomitant]
  7. CALCIUM CITRATE PLUS VITAMIN D [Concomitant]
  8. VAGIFEM SUPPOSITORY [Concomitant]
  9. BONIVA INFUSION [Concomitant]
  10. FERROUS SULFATE TAB [Concomitant]
  11. VITAMIN D [Concomitant]
  12. MULTI-VITAMINS [Concomitant]
  13. URSODIOL [Concomitant]

REACTIONS (9)
  - DERMAL CYST [None]
  - PRURITUS [None]
  - SEBACEOUS HYPERPLASIA [None]
  - ACNE [None]
  - DIARRHOEA [None]
  - FATIGUE [None]
  - NAUSEA [None]
  - FAECES DISCOLOURED [None]
  - BLOOD BILIRUBIN INCREASED [None]
